FAERS Safety Report 26064957 (Version 1)
Quarter: 2025Q4

REPORT INFORMATION
  Report Type: Spontaneous
  Country: EU (occurrence: EU)
  Receive Date: 20251119
  Receipt Date: 20251119
  Transmission Date: 20260118
  Serious: Yes (Death, Hospitalization, Other)
  Sender: PFIZER
  Company Number: None

PATIENT
  Age: 65 Year
  Sex: Female
  Weight: 66 kg

DRUGS (1)
  1. LORLATINIB [Suspect]
     Active Substance: LORLATINIB
     Indication: Non-small cell lung cancer stage IV
     Dosage: UNCLEAR } SECONDARY TO PRECIPITATION. ONCOLOGISTS ADMINISTERED
     Route: 048
     Dates: end: 20250301

REACTIONS (9)
  - Multiple organ dysfunction syndrome [Fatal]
  - Haemorrhagic diathesis [Unknown]
  - Gastric haemorrhage [Unknown]
  - Pulmonary haemorrhage [Unknown]
  - Haematuria [Unknown]
  - Epistaxis [Unknown]
  - Pulmonary sepsis [Unknown]
  - Respiratory failure [Unknown]
  - Pleural effusion [Unknown]

NARRATIVE: CASE EVENT DATE: 20250101
